FAERS Safety Report 9483693 (Version 1)
Quarter: 2013Q3

REPORT INFORMATION
  Report Type: Report from Study
  Country: CA (occurrence: CA)
  Receive Date: 20130828
  Receipt Date: 20130828
  Transmission Date: 20140515
  Serious: Yes (Other)
  Sender: FDA-Public Use
  Company Number: CA-JNJFOC-20130814080

PATIENT
  Age: 45 Year
  Sex: Male
  Weight: 121.9 kg

DRUGS (2)
  1. REMICADE [Suspect]
     Indication: CROHN^S DISEASE
     Route: 042
  2. IBUPROFEN [Concomitant]
     Route: 065

REACTIONS (3)
  - Erythema nodosum [Unknown]
  - Local swelling [Recovering/Resolving]
  - Musculoskeletal stiffness [Unknown]
